FAERS Safety Report 4421314-5 (Version None)
Quarter: 2004Q3

REPORT INFORMATION
  Report Type: 
  Country: None (occurrence: None)
  Receive Date: 20040804
  Receipt Date: 20040712
  Transmission Date: 20050211
  Serious: No
  Sender: FDA-Public Use
  Company Number: 2004-118610-NL

PATIENT
  Age: 67 Year
  Sex: Male

DRUGS (6)
  1. DEXAMETHASONE [Suspect]
     Dosage: 1 MG BID  ORAL
     Route: 048
     Dates: start: 20040606, end: 20040612
  2. DEXAMETHASONE [Suspect]
     Dosage: 1 MG BID  ORAL
     Route: 048
     Dates: start: 20040623, end: 20040623
  3. PANCREATIN [Concomitant]
  4. COD-LIVER OIL [Concomitant]
  5. OMEPRAZOLE [Concomitant]
  6. CODEINE SUL TAB [Concomitant]

REACTIONS (3)
  - FATIGUE [None]
  - HICCUPS [None]
  - MYALGIA [None]
